FAERS Safety Report 10932621 (Version 1)
Quarter: 2015Q1

REPORT INFORMATION
  Report Type: Spontaneous
  Country: US (occurrence: None)
  Receive Date: 20150318
  Receipt Date: 20150318
  Transmission Date: 20150721
  Serious: Yes (Other)
  Sender: FDA-Public Use
  Company Number: 2015JUB00074

PATIENT
  Age: 62 Year
  Sex: Female
  Weight: 102.9 kg

DRUGS (5)
  1. WARFARIN [Concomitant]
     Active Substance: WARFARIN
  2. ASPIRIN. [Concomitant]
     Active Substance: ASPIRIN
  3. ORENITRAM [Suspect]
     Active Substance: TREPROSTINIL
     Indication: PULMONARY HYPERTENSION
     Route: 048
     Dates: start: 20140728
  4. OPSIMIT [Concomitant]
  5. PREDNISONE (PREDNISONE) [Suspect]
     Active Substance: PREDNISONE

REACTIONS (14)
  - Oropharyngeal pain [None]
  - Rhinorrhoea [None]
  - Muscular weakness [None]
  - Cough [None]
  - Upper respiratory tract infection [None]
  - Nasopharyngitis [None]
  - Dyspnoea exertional [None]
  - Headache [None]
  - Pain in jaw [None]
  - Fluid retention [None]
  - Nasal congestion [None]
  - Diarrhoea [None]
  - Sensitivity of teeth [None]
  - Back pain [None]

NARRATIVE: CASE EVENT DATE: 201502
